FAERS Safety Report 7423054-7 (Version None)
Quarter: 2011Q2

REPORT INFORMATION
  Report Type: 
  Country: None (occurrence: None)
  Receive Date: 20110419
  Receipt Date: 20110412
  Transmission Date: 20111010
  Serious: Yes (Other)
  Sender: FDA-Public Use
  Company Number: IT-ELI_LILLY_AND_COMPANY-IT201103008470

PATIENT

DRUGS (5)
  1. GEMCITABINE HYDROCHLORIDE [Suspect]
     Dosage: 300 MG/M2, ON DAYS 1, 8, 15, 22, 29 AND 36
     Route: 042
  2. GEMCITABINE HYDROCHLORIDE [Suspect]
     Dosage: 400 MG/M2, ON DAYS 1, 8, 15, 22, 29 AND 36
     Route: 042
  3. CISPLATIN [Concomitant]
     Dosage: 100 MG/M2, ON DAYS 1 AND 22
  4. GEMCITABINE HYDROCHLORIDE [Suspect]
     Dosage: 500 MG/M2, ON DAYS 1, 8, 15, 22, 29 AND 36
     Route: 042
  5. GEMCITABINE HYDROCHLORIDE [Suspect]
     Indication: BLADDER CANCER
     Dosage: 200 MG/M2, ON DAYS 1, 8, 15, 22, 29 AND 36
     Route: 042

REACTIONS (1)
  - INTESTINAL PERFORATION [None]
